FAERS Safety Report 5744514-0 (Version None)
Quarter: 2008Q2

REPORT INFORMATION
  Report Type: 
  Country: None (occurrence: None)
  Receive Date: 20080520
  Receipt Date: 20080508
  Transmission Date: 20081010
  Serious: Yes (Hospitalization, Other)
  Sender: FDA-Public Use
  Company Number: US-ROCHE-524807

PATIENT
  Sex: Female
  Weight: 52.7 kg

DRUGS (30)
  1. RIBAVIRIN [Suspect]
     Indication: HEPATITIS C
     Route: 048
     Dates: start: 20070628, end: 20070711
  2. RIBAVIRIN [Suspect]
     Dosage: DOSE REDUCED TO 600 MG.
     Route: 048
     Dates: start: 20070712, end: 20070720
  3. PEGASYS [Suspect]
     Route: 058
     Dates: start: 20070628
  4. VX-950 [Suspect]
     Route: 048
     Dates: start: 20070628, end: 20070901
  5. VX-950 [Suspect]
     Route: 048
     Dates: start: 20070912, end: 20070917
  6. FLONASE [Concomitant]
  7. COL-RITE [Concomitant]
     Dosage: GENERIC REPORTED AS DOCUSATE.
     Route: 048
  8. ULTRAM [Concomitant]
  9. ULTRAM [Concomitant]
  10. VALIUM [Concomitant]
     Indication: ANXIETY
  11. VALIUM [Concomitant]
  12. NORCO [Concomitant]
     Dosage: GENERIC REPORTED AS VICODIN; HYDROCODONE AND ACETAMINOPHEN.
  13. NORCO [Concomitant]
     Dosage: GENERIC REPORTED AS VICODIN. FREQUENCY: AS REQUIRED.
  14. NORCO [Concomitant]
     Dosage: GENERIC REPORTED AS VICODIN; HYDROCODONE AND ACETAMINOPHEN.
  15. NORCO [Concomitant]
     Dosage: GENERIC REPORTED AS VICODIN. FREQUENCY: AS REQUIRED.
  16. SYNTHROID [Concomitant]
     Dosage: GENERIC REPORTED AS LEVOTHYROXINE SODIUM.
  17. CRANTEX [Concomitant]
     Dosage: GENERIC REPORTED AS ENDAL.
     Route: 048
  18. CRANTEX [Concomitant]
     Dosage: GENERIC REPORTED AS ENDAL.
     Route: 048
  19. OXYCONTIN [Concomitant]
     Dosage: GENERIC REPORTED AS OXYCODONE HYDROCHLORIDE.
  20. OXYCONTIN [Concomitant]
     Dosage: GENERIC REPORTED AS OXYCODONE HYDROCHLORIDE.
  21. ATARAX [Concomitant]
  22. SEROQUEL [Concomitant]
  23. SEROQUEL [Concomitant]
  24. SEROQUEL [Concomitant]
     Dosage: AT BEDTIME.
  25. FOSAMAX [Concomitant]
     Dosage: GENERIC REPORTED AS ALENDRONATE SODIUM.
  26. HYDROXYZINE [Concomitant]
  27. LYRICA [Concomitant]
  28. LORAZEPAM [Concomitant]
  29. EMSAM [Concomitant]
  30. DOXEPIN HCL [Concomitant]

REACTIONS (6)
  - CONFUSIONAL STATE [None]
  - DELIRIUM [None]
  - ELECTROLYTE IMBALANCE [None]
  - HYPOTENSION [None]
  - NEUROGENIC BLADDER [None]
  - RENAL FAILURE ACUTE [None]
